FAERS Safety Report 18271292 (Version 2)
Quarter: 2020Q4

REPORT INFORMATION
  Report Type: Spontaneous
  Country: US (occurrence: US)
  Receive Date: 20200916
  Receipt Date: 20201013
  Transmission Date: 20210113
  Serious: No
  Sender: FDA-Public Use
  Company Number: US-ASTRAZENECA-2020SF17201

PATIENT
  Age: 832 Month
  Sex: Male
  Weight: 84.8 kg

DRUGS (2)
  1. BUDESONIDE AND FORMOTEROL AEROSOL [Suspect]
     Active Substance: BUDESONIDE\FORMOTEROL FUMARATE DIHYDRATE
     Indication: CHRONIC OBSTRUCTIVE PULMONARY DISEASE
     Dosage: UNKNOWN, TWO TIMES A DAY
     Route: 055
     Dates: start: 20200903
  2. ALBUTEROL. [Concomitant]
     Active Substance: ALBUTEROL
     Dosage: UNKNOWN
     Route: 065

REACTIONS (4)
  - Pneumonia [Unknown]
  - Device failure [Unknown]
  - Intentional product misuse [Unknown]
  - Intentional device misuse [Unknown]

NARRATIVE: CASE EVENT DATE: 202009
